FAERS Safety Report 5891535-3 (Version None)
Quarter: 2008Q3

REPORT INFORMATION
  Report Type: 
  Country: None (occurrence: None)
  Receive Date: 20080922
  Receipt Date: 20080909
  Transmission Date: 20090109
  Serious: Yes (Other)
  Sender: FDA-Public Use
  Company Number: DE-ROCHE-578462

PATIENT
  Sex: Female

DRUGS (4)
  1. BONIVA [Suspect]
     Indication: OSTEOPOROSIS
     Dosage: FORM: INFUSION.
     Route: 042
     Dates: start: 20080514
  2. TILIDIN PLUS [Concomitant]
     Indication: BACK PAIN
     Dosage: DRUG REPORTED AS TILIDIN PLUS 50/4
     Route: 048
     Dates: start: 20070301, end: 20070501
  3. DECORTIN H [Concomitant]
     Dosage: DRUG REPORTED AS DECORTIN H 20 MG.
     Route: 048
     Dates: start: 20070301
  4. METHOTREXATE [Concomitant]
     Route: 042
     Dates: start: 20080201

REACTIONS (3)
  - ALANINE AMINOTRANSFERASE INCREASED [None]
  - BLOOD ALKALINE PHOSPHATASE INCREASED [None]
  - GAMMA-GLUTAMYLTRANSFERASE INCREASED [None]
